FAERS Safety Report 7889712-5 (Version None)
Quarter: 2011Q4

REPORT INFORMATION
  Report Type: 
  Country: None (occurrence: None)
  Receive Date: 20111103
  Receipt Date: 20110926
  Transmission Date: 20120403
  Serious: No
  Sender: FDA-Public Use
  Company Number: US-BAYER-2011-094968

PATIENT
  Age: 72 Year
  Sex: Male
  Weight: 79.365 kg

DRUGS (5)
  1. ACETYLSALICYLIC ACID SRT [Concomitant]
  2. PLAVIX [Concomitant]
  3. ASPIRIN [Suspect]
     Indication: BACK PAIN
     Dosage: 325 MG, ONCE, BOTTLE COUNT 24S
     Route: 048
     Dates: start: 20110901, end: 20110901
  4. BENICAR [Concomitant]
  5. LIPITOR [Concomitant]

REACTIONS (3)
  - DIARRHOEA [None]
  - THROAT IRRITATION [None]
  - GLOSSODYNIA [None]
